FAERS Safety Report 17375103 (Version 1)
Quarter: 2020Q1

REPORT INFORMATION
  Report Type: Spontaneous
  Country: US (occurrence: US)
  Receive Date: 20200204
  Receipt Date: 20200204
  Transmission Date: 20200409
  Serious: No
  Sender: FDA-Public Use
  Company Number: None

PATIENT
  Age: 25 Year
  Sex: Female
  Weight: 63 kg

DRUGS (3)
  1. AMPHETAMINE/DEXTROAMPHETAMINE [Concomitant]
     Active Substance: AMPHETAMINE\DEXTROAMPHETAMINE
  2. SUNOSI [Suspect]
     Active Substance: SOLRIAMFETOL
     Indication: SOMNOLENCE
     Dosage: ?          QUANTITY:1 TABLET(S);?
     Route: 048
     Dates: start: 20200126, end: 20200126
  3. LAMOTRIGINE 200 MG [Concomitant]
     Active Substance: LAMOTRIGINE

REACTIONS (7)
  - Panic attack [None]
  - Somnambulism [None]
  - Sleep apnoea syndrome [None]
  - Anxiety [None]
  - Aggression [None]
  - Narcolepsy [None]
  - Sleep talking [None]

NARRATIVE: CASE EVENT DATE: 20200126
